FAERS Safety Report 6174538-3 (Version None)
Quarter: 2009Q2

REPORT INFORMATION
  Report Type: 
  Country: None (occurrence: None)
  Receive Date: 20090430
  Receipt Date: 20080721
  Transmission Date: 20091009
  Serious: No
  Sender: FDA-Public Use
  Company Number: US-ASTRAZENECA-2008UW14523

PATIENT
  Sex: Male

DRUGS (3)
  1. NEXIUM [Suspect]
     Indication: GASTROOESOPHAGEAL REFLUX DISEASE
     Dosage: 40 MG
     Route: 048
     Dates: start: 20080720
  2. NEXIUM [Suspect]
     Indication: HIATUS HERNIA
     Dosage: 40 MG
     Route: 048
     Dates: start: 20080720
  3. NEXIUM [Suspect]
     Indication: OESOPHAGEAL SPASM
     Dosage: 40 MG
     Route: 048
     Dates: start: 20080720

REACTIONS (2)
  - DIZZINESS [None]
  - HYPOTENSION [None]
